FAERS Safety Report 23240981 (Version 1)
Quarter: 2023Q4

REPORT INFORMATION
  Report Type: Spontaneous
  Country: US (occurrence: None)
  Receive Date: 20231128
  Receipt Date: 20231128
  Transmission Date: 20240110
  Serious: No
  Sender: FDA-Public Use
  Company Number: None

PATIENT
  Age: 59 Year
  Sex: Female
  Weight: 56.25 kg

DRUGS (1)
  1. XARELTO [Suspect]
     Active Substance: RIVAROXABAN
     Indication: Transient ischaemic attack
     Dates: start: 20230825, end: 20231115

REACTIONS (5)
  - Hypoaesthesia [None]
  - Restlessness [None]
  - Upper-airway cough syndrome [None]
  - Salivary hypersecretion [None]
  - Blood pressure systolic decreased [None]
